FAERS Safety Report 19605892 (Version 1)
Quarter: 2021Q3

REPORT INFORMATION
  Report Type: Spontaneous
  Country: US (occurrence: US)
  Receive Date: 20210723
  Receipt Date: 20210723
  Transmission Date: 20211014
  Serious: No
  Sender: FDA-Public Use
  Company Number: US-009507513-2107USA006712

PATIENT
  Age: 70 Year
  Sex: Male

DRUGS (3)
  1. CUBICIN [Suspect]
     Active Substance: DAPTOMYCIN
     Indication: STAPHYLOCOCCAL INFECTION
     Dosage: 8 MG/KG
     Dates: start: 2020
  2. OXACILLIN [Concomitant]
     Active Substance: OXACILLIN SODIUM
     Indication: STAPHYLOCOCCAL INFECTION
     Dosage: 2 G EVERY 4 HOURS
     Dates: start: 2020
  3. CEFTAROLINE [Concomitant]
     Active Substance: CEFTAROLINE
     Indication: STAPHYLOCOCCAL INFECTION
     Dosage: 600 MG EVERY 8 HOURS.
     Dates: start: 2020

REACTIONS (1)
  - Incorrect dose administered [Unknown]
